FAERS Safety Report 18547952 (Version 1)
Quarter: 2020Q4

REPORT INFORMATION
  Report Type: Spontaneous
  Country: RS (occurrence: RS)
  Receive Date: 20201125
  Receipt Date: 20201125
  Transmission Date: 20210114
  Serious: Yes (Hospitalization, Other)
  Sender: FDA-Public Use
  Company Number: RS-BAUSCH-BL-2020-034422

PATIENT
  Age: 66 Year
  Sex: Male

DRUGS (6)
  1. FENOFIBRATE. [Suspect]
     Active Substance: FENOFIBRATE
     Indication: HYPERTRIGLYCERIDAEMIA
  2. PRAVASTATIN. [Suspect]
     Active Substance: PRAVASTATIN
     Indication: HYPERTRIGLYCERIDAEMIA
  3. PRAVASTATIN. [Suspect]
     Active Substance: PRAVASTATIN
     Indication: HYPERCHOLESTEROLAEMIA
  4. FENOFIBRATE. [Suspect]
     Active Substance: FENOFIBRATE
     Indication: HYPERLIPIDAEMIA
     Route: 065
  5. FENOFIBRATE. [Suspect]
     Active Substance: FENOFIBRATE
     Indication: HYPERCHOLESTEROLAEMIA
  6. PRAVASTATIN. [Suspect]
     Active Substance: PRAVASTATIN
     Indication: HYPERLIPIDAEMIA
     Route: 065

REACTIONS (8)
  - Cardiomyopathy [Recovered/Resolved]
  - Ill-defined disorder [Recovered/Resolved]
  - Blood pressure increased [Recovered/Resolved]
  - Therapy non-responder [Unknown]
  - Diastolic dysfunction [Recovered/Resolved]
  - Bundle branch block left [Recovered/Resolved]
  - Dyspnoea [Recovered/Resolved]
  - Left ventricular hypertrophy [Recovered/Resolved]
